FAERS Safety Report 7799422-0 (Version None)
Quarter: 2011Q4

REPORT INFORMATION
  Report Type: 
  Country: None (occurrence: None)
  Receive Date: 20111004
  Receipt Date: 20110922
  Transmission Date: 20120403
  Serious: Yes (Life-Threatening, Hospitalization)
  Sender: FDA-Public Use
  Company Number: 1052374

PATIENT
  Age: 45 Year
  Sex: Female

DRUGS (17)
  1. PROPOFOL [Suspect]
     Indication: PRODUCT USED FOR UNKNOWN INDICATION
     Dosage: 20ML
  2. (CALCIUM GLUCONATE) [Concomitant]
  3. (FLAGYL	 /00012501/) [Concomitant]
  4. LACTATED RINGERS (LACTATED RINGERS) [Suspect]
     Indication: PRODUCT USED FOR UNKNOWN INDICATION
  5. SODIUM CHLORIDE 0.9% [Suspect]
     Indication: PRODUCT USED FOR UNKNOWN INDICATION
  6. (ANCEF	/00288502/) [Concomitant]
  7. (ALL OTHER THERAPEUTIC PRODUCTS) [Concomitant]
  8. NEXIUM [Concomitant]
  9. VOLUVEN [Concomitant]
  10. MIDAZOLAM HCL [Suspect]
     Indication: PRODUCT USED FOR UNKNOWN INDICATION
     Dosage: 1MG/ML
  11. (DEXAMETHASONE) [Concomitant]
  12. DIOVAN HCT [Concomitant]
  13. PHENYLEPHRINE HCL [Concomitant]
  14. PLASMA [Concomitant]
  15. HEPARIN [Suspect]
     Indication: PRODUCT USED FOR UNKNOWN INDICATION
     Dosage: 5000ML
  16. SUFENTANIL CITRATE [Suspect]
     Indication: PRODUCT USED FOR UNKNOWN INDICATION
  17. ZEMURON [Suspect]
     Indication: PRODUCT USED FOR UNKNOWN INDICATION
     Dosage: 50 MG

REACTIONS (3)
  - INTERNATIONAL NORMALISED RATIO INCREASED [None]
  - PROTHROMBIN LEVEL ABNORMAL [None]
  - INTRA-ABDOMINAL HAEMORRHAGE [None]
